FAERS Safety Report 9322314 (Version 2)
Quarter: 2014Q1

REPORT INFORMATION
  Report Type: Report from Study
  Country: US (occurrence: US)
  Receive Date: 20130531
  Receipt Date: 20140121
  Transmission Date: 20141002
  Serious: Yes (Hospitalization)
  Sender: FDA-Public Use
  Company Number: US-GLAXOSMITHKLINE-A1024960A

PATIENT
  Age: 57 Year
  Sex: Male

DRUGS (11)
  1. OFATUMUMAB [Suspect]
     Indication: CHRONIC LYMPHOCYTIC LEUKAEMIA
     Dosage: 1000MG MONTHLY
     Route: 042
     Dates: start: 20130117
  2. CAMPATH [Suspect]
  3. ACYCLOVIR [Concomitant]
  4. FLUCONAZOLE [Concomitant]
  5. OLANZAPINE [Concomitant]
  6. PANTOPRAZOLE [Concomitant]
  7. SULFAMETHOXAZOLE-TRIMETHOPRIM [Concomitant]
  8. DOCUSATE SODIUM [Concomitant]
  9. FOLIC ACID [Concomitant]
  10. INSULIN [Concomitant]
  11. SIMETHICONE [Concomitant]

REACTIONS (1)
  - Infusion related reaction [Recovered/Resolved]
